FAERS Safety Report 10308972 (Version 6)
Quarter: 2014Q4

REPORT INFORMATION
  Report Type: Spontaneous
  Country: US (occurrence: US)
  Receive Date: 20140716
  Receipt Date: 20141117
  Transmission Date: 20150528
  Serious: Yes (Hospitalization, Other)
  Sender: FDA-Public Use
  Company Number: US-009507513-1407USA006808

PATIENT
  Sex: Male
  Weight: 83.9 kg

DRUGS (4)
  1. BYETTA [Suspect]
     Active Substance: EXENATIDE
     Indication: TYPE 2 DIABETES MELLITUS
     Dosage: 10 MICROGRAM, QD
     Route: 048
     Dates: start: 200604, end: 200612
  2. JANUVIA [Suspect]
     Active Substance: SITAGLIPTIN PHOSPHATE
     Indication: TYPE 2 DIABETES MELLITUS
     Dosage: 100 MG, QD
     Route: 048
     Dates: start: 20061120, end: 20080111
  3. JANUMET [Suspect]
     Active Substance: METFORMIN HYDROCHLORIDE\SITAGLIPTIN PHOSPHATE
     Dosage: 50-1000 MG, BID
     Route: 048
     Dates: start: 20110707, end: 20120822
  4. JANUMET [Suspect]
     Active Substance: METFORMIN HYDROCHLORIDE\SITAGLIPTIN PHOSPHATE
     Indication: TYPE 2 DIABETES MELLITUS
     Dosage: 50-1000 MG QD
     Route: 048
     Dates: start: 20080610, end: 201209

REACTIONS (14)
  - Adenocarcinoma pancreas [Unknown]
  - Pancreatectomy [Unknown]
  - Pancreatic cyst [Unknown]
  - Diastasis recti abdominis [Unknown]
  - Treatment noncompliance [Unknown]
  - Hypertension [Unknown]
  - Inappropriate schedule of drug administration [Unknown]
  - Splenectomy [Unknown]
  - Chest discomfort [Unknown]
  - Glycosylated haemoglobin increased [Unknown]
  - Cataract operation [Unknown]
  - Angina pectoris [Unknown]
  - Abdominal discomfort [Unknown]
  - Dyspnoea [Unknown]

NARRATIVE: CASE EVENT DATE: 20080111
